FAERS Safety Report 11233862 (Version 4)
Quarter: 2015Q4

REPORT INFORMATION
  Report Type: Spontaneous
  Country: AR (occurrence: AR)
  Receive Date: 20150702
  Receipt Date: 20151110
  Transmission Date: 20160304
  Serious: Yes (Hospitalization)
  Sender: FDA-Public Use
  Company Number: AR-ROCHE-1599432

PATIENT
  Age: 60 Year
  Sex: Female

DRUGS (8)
  1. ACTEMRA [Suspect]
     Active Substance: TOCILIZUMAB
     Indication: RHEUMATOID ARTHRITIS
     Dosage: COMPLETED IN HALF HOUR
     Route: 042
     Dates: start: 2014
  2. ACTEMRA [Suspect]
     Active Substance: TOCILIZUMAB
     Dosage: 5TH INFUSION APPLIED IN 2 HOURS
     Route: 042
     Dates: start: 2015
  3. ACTEMRA [Suspect]
     Active Substance: TOCILIZUMAB
     Dosage: 3RD INFUSION APPLIED IN 1 HOUR
     Route: 042
     Dates: start: 201409
  4. ALPLAX [Concomitant]
     Dosage: AT NIGHT
     Route: 065
  5. ACTEMRA [Suspect]
     Active Substance: TOCILIZUMAB
     Dosage: 4RD INFUSION APPLIED IN 2 HOURS
     Route: 042
     Dates: start: 2015
  6. ACTEMRA [Suspect]
     Active Substance: TOCILIZUMAB
     Route: 042
     Dates: start: 201505, end: 201505
  7. ORENCIA [Suspect]
     Active Substance: ABATACEPT
     Indication: PRODUCT USED FOR UNKNOWN INDICATION
     Route: 065
     Dates: start: 20150902
  8. METHOTREXATE [Concomitant]
     Active Substance: METHOTREXATE
     Indication: RHEUMATOID ARTHRITIS
     Route: 048
     Dates: start: 201505, end: 201505

REACTIONS (13)
  - Dizziness [Not Recovered/Not Resolved]
  - Syncope [Recovered/Resolved]
  - Epilepsy [Not Recovered/Not Resolved]
  - Hypotension [Unknown]
  - Musculoskeletal stiffness [Recovered/Resolved]
  - Blood cholesterol abnormal [Not Recovered/Not Resolved]
  - Rash [Unknown]
  - Disease recurrence [Unknown]
  - Blood glucose increased [Unknown]
  - Syncope [Recovered/Resolved]
  - Aortic arteriosclerosis [Not Recovered/Not Resolved]
  - Hypertension [Recovered/Resolved]
  - Headache [Recovered/Resolved]

NARRATIVE: CASE EVENT DATE: 201505
